FAERS Safety Report 6676856-9 (Version None)
Quarter: 2010Q2

REPORT INFORMATION
  Report Type: 
  Country: None (occurrence: None)
  Receive Date: 20100408
  Receipt Date: 20100408
  Transmission Date: 20101027
  Serious: Yes (Life-Threatening)
  Sender: FDA-Public Use
  Company Number: None

PATIENT
  Sex: Female
  Weight: 69.5 kg

DRUGS (1)
  1. VANCOMYCIN [Suspect]
     Indication: PREOPERATIVE CARE
     Dosage: VANCOMYCIN 1G ONE TIME IV
     Route: 042
     Dates: start: 20100326

REACTIONS (3)
  - ANAPHYLACTIC REACTION [None]
  - BRONCHOSPASM [None]
  - SUPRAVENTRICULAR TACHYCARDIA [None]
